FAERS Safety Report 21700504 (Version 3)
Quarter: 2022Q4

REPORT INFORMATION
  Report Type: Report from Study
  Country: US (occurrence: US)
  Receive Date: 20221208
  Receipt Date: 20221219
  Transmission Date: 20230112
  Serious: Yes (Other)
  Sender: FDA-Public Use
  Company Number: US-ABBVIE-4176802

PATIENT
  Age: 24 Year
  Sex: Female

DRUGS (2)
  1. HUMIRA [Suspect]
     Active Substance: ADALIMUMAB
     Indication: Crohn^s disease
     Dosage: END DATE WAS 2022?FORM STRENGTH: 40 MG
     Route: 058
     Dates: start: 20220824
  2. HUMIRA [Suspect]
     Active Substance: ADALIMUMAB
     Dosage: FORM STRENGTH: 40 MG? CITRATE FREE
     Route: 058
     Dates: start: 202209

REACTIONS (9)
  - Appendicectomy [Unknown]
  - Colectomy total [Unknown]
  - Hot flush [Unknown]
  - Alopecia [Not Recovered/Not Resolved]
  - Nausea [Recovering/Resolving]
  - Incorrect dose administered [Unknown]
  - Small intestinal resection [Unknown]
  - Crohn^s disease [Unknown]
  - Device issue [Unknown]

NARRATIVE: CASE EVENT DATE: 20220910
